FAERS Safety Report 7432779-9 (Version None)
Quarter: 2011Q2

REPORT INFORMATION
  Report Type: 
  Country: None (occurrence: None)
  Receive Date: 20110422
  Receipt Date: 20110415
  Transmission Date: 20111010
  Serious: Yes (Death)
  Sender: FDA-Public Use
  Company Number: B0713500A

PATIENT
  Sex: Male
  Weight: 90 kg

DRUGS (1)
  1. ZANAMIVIR [Suspect]
     Dosage: 600MG TWICE PER DAY
     Route: 042

REACTIONS (1)
  - DEATH [None]
